FAERS Safety Report 9904608 (Version 1)
Quarter: 2014Q1

REPORT INFORMATION
  Report Type: Spontaneous
  Country: FR (occurrence: FR)
  Receive Date: 20140218
  Receipt Date: 20140218
  Transmission Date: 20141002
  Serious: Yes (Hospitalization, Other)
  Sender: FDA-Public Use
  Company Number: FR-ELI_LILLY_AND_COMPANY-FR201402001303

PATIENT
  Age: 64 Year
  Sex: Female

DRUGS (6)
  1. ZYPREXA [Suspect]
     Indication: PRODUCT USED FOR UNKNOWN INDICATION
     Dosage: 1 DF, UNKNOWN
     Route: 048
     Dates: start: 20131104, end: 20131115
  2. ZYPREXA [Suspect]
     Dosage: 1 DF, UNKNOWN
     Route: 048
     Dates: start: 201310, end: 201310
  3. ZYPREXA [Suspect]
     Dosage: 1 DF, UNKNOWN
     Route: 048
     Dates: end: 201310
  4. SEROPLEX [Concomitant]
     Indication: PRODUCT USED FOR UNKNOWN INDICATION
     Dosage: 40 MG, QD
     Route: 065
     Dates: start: 20131101
  5. NOCTAMIDE [Concomitant]
     Indication: PRODUCT USED FOR UNKNOWN INDICATION
     Dosage: 2 MG, QD
     Route: 065
     Dates: start: 20131101
  6. XANAX [Concomitant]
     Indication: PRODUCT USED FOR UNKNOWN INDICATION
     Dosage: 0.5 MG, TID
     Route: 065
     Dates: start: 20131101

REACTIONS (3)
  - Depression suicidal [Unknown]
  - Neutropenia [Recovered/Resolved]
  - Phlebitis [Unknown]
